FAERS Safety Report 18703263 (Version 2)
Quarter: 2021Q1

REPORT INFORMATION
  Report Type: Spontaneous
  Country: US (occurrence: US)
  Receive Date: 20210105
  Receipt Date: 20210218
  Transmission Date: 20210419
  Serious: No
  Sender: FDA-Public Use
  Company Number: US-PFIZER INC-2021003413

PATIENT
  Age: 66 Year
  Sex: Female

DRUGS (1)
  1. BRAFTOVI [Suspect]
     Active Substance: ENCORAFENIB
     Indication: COLON CANCER METASTATIC
     Dosage: 300 MG, 1X/DAY
     Route: 048

REACTIONS (1)
  - Iron deficiency anaemia [Unknown]
